FAERS Safety Report 4296433-7 (Version None)
Quarter: 2004Q1

REPORT INFORMATION
  Report Type: 
  Country: None (occurrence: None)
  Receive Date: 20040217
  Receipt Date: 20040212
  Transmission Date: 20041129
  Serious: Yes (Other)
  Sender: FDA-Public Use
  Company Number: 200410339JP

PATIENT
  Age: 6 Month
  Sex: Female
  Weight: 1.54 kg

DRUGS (9)
  1. LASIX [Suspect]
     Indication: CARDIOMEGALY
     Route: 041
     Dates: start: 20030129, end: 20030603
  2. LASIX [Suspect]
     Indication: PULMONARY CONGESTION
     Route: 041
     Dates: start: 20030129, end: 20030603
  3. DIGOSIN [Concomitant]
     Indication: CARDIOMEGALY
     Route: 048
     Dates: start: 20030424
  4. ALDACTONE [Concomitant]
     Indication: CARDIOMEGALY
     Route: 048
     Dates: start: 20030212
  5. ALDACTONE [Concomitant]
     Indication: PULMONARY CONGESTION
     Route: 048
     Dates: start: 20030212
  6. INCREMIN [Concomitant]
     Indication: ANAEMIA
     Route: 048
     Dates: start: 20030303
  7. PANVITAN [Concomitant]
     Indication: GENERAL NUTRITION DISORDER
     Route: 048
     Dates: start: 20030204
  8. ESPO [Concomitant]
     Indication: ANAEMIA
     Route: 058
     Dates: start: 20030508, end: 20030630
  9. SODIUM CHLORIDE [Concomitant]
     Indication: HYPONATRAEMIA
     Route: 048
     Dates: start: 20030417

REACTIONS (16)
  - ALKALOSIS HYPOCHLORAEMIC [None]
  - BASE EXCESS NEGATIVE [None]
  - BASE EXCESS POSITIVE [None]
  - BLOOD ALKALINE PHOSPHATASE INCREASED [None]
  - BLOOD CHLORIDE INCREASED [None]
  - BLOOD SODIUM INCREASED [None]
  - CALCIUM IONISED INCREASED [None]
  - ENDOCRINE DISORDER [None]
  - HYPERCALCAEMIA [None]
  - HYPERCHLORAEMIA [None]
  - HYPERNATRAEMIA [None]
  - LABORATORY TEST ABNORMAL [None]
  - NEPHROGENIC DIABETES INSIPIDUS [None]
  - PCO2 INCREASED [None]
  - PH BODY FLUID DECREASED [None]
  - PO2 DECREASED [None]
